FAERS Safety Report 21523748 (Version 2)
Quarter: 2022Q4

REPORT INFORMATION
  Report Type: Report from Study
  Country: US (occurrence: US)
  Receive Date: 20221029
  Receipt Date: 20221210
  Transmission Date: 20230113
  Serious: No
  Sender: FDA-Public Use
  Company Number: US-ABBVIE-4179267

PATIENT
  Age: 56 Year
  Sex: Female

DRUGS (2)
  1. IMBRUVICA [Suspect]
     Active Substance: IBRUTINIB
     Indication: Lymphocytic leukaemia
     Route: 048
     Dates: end: 20220923
  2. IMBRUVICA [Suspect]
     Active Substance: IBRUTINIB
     Indication: Lymphocytic leukaemia
     Dosage: START DATE: 2022
     Route: 048

REACTIONS (4)
  - Muscle spasms [Recovering/Resolving]
  - Fall [Unknown]
  - Pain [Unknown]
  - Migraine [Unknown]

NARRATIVE: CASE EVENT DATE: 20220901
